FAERS Safety Report 23316775 (Version 6)
Quarter: 2025Q3

REPORT INFORMATION
  Report Type: Spontaneous
  Country: US (occurrence: US)
  Receive Date: 20231219
  Receipt Date: 20250812
  Transmission Date: 20251020
  Serious: No
  Sender: ROCHE
  Company Number: US-ROCHE-3400451

PATIENT
  Age: 27 Year
  Sex: Male
  Weight: 93.67 kg

DRUGS (3)
  1. HEMLIBRA [Suspect]
     Active Substance: EMICIZUMAB-KXWH
     Indication: Factor VIII deficiency
     Dosage: STRENGTH- 150MG/ML
     Route: 058
     Dates: start: 202203
  2. HEMLIBRA [Suspect]
     Active Substance: EMICIZUMAB-KXWH
     Dosage: STRENGTH- 150MG/ML
     Route: 058
     Dates: start: 202303
  3. ADVATE [Concomitant]
     Active Substance: ANTIHEMOPHILIC FACTOR, HUMAN RECOMBINANT

REACTIONS (7)
  - Haemorrhage [Recovered/Resolved]
  - Nail injury [Unknown]
  - Nail discolouration [Unknown]
  - Off label use [Unknown]
  - Haemorrhoids [Unknown]
  - Weight decreased [Unknown]
  - Muscle strain [Unknown]

NARRATIVE: CASE EVENT DATE: 20250620
